FAERS Safety Report 16476099 (Version 1)
Quarter: 2019Q2

REPORT INFORMATION
  Report Type: Report from Study
  Country: None (occurrence: US)
  Receive Date: 20190625
  Receipt Date: 20190625
  Transmission Date: 20190711
  Serious: Yes (Other)
  Sender: FDA-Public Use
  Company Number: US-ABBVIE-19K-163-2643237-00

PATIENT
  Age: 81 Year
  Sex: Female
  Weight: 53.12 kg

DRUGS (4)
  1. HUMIRA [Suspect]
     Active Substance: ADALIMUMAB
     Indication: RHEUMATOID ARTHRITIS
     Route: 058
     Dates: start: 201905
  2. HUMIRA [Suspect]
     Active Substance: ADALIMUMAB
     Indication: RHEUMATOID ARTHRITIS
     Route: 058
     Dates: start: 201809, end: 201905
  3. POTASSIUM [Concomitant]
     Active Substance: POTASSIUM
     Indication: ADJUVANT THERAPY
  4. FUROSEMIDE. [Concomitant]
     Active Substance: FUROSEMIDE
     Indication: SWELLING

REACTIONS (9)
  - Meniscus injury [Recovered/Resolved]
  - Clumsiness [Unknown]
  - Fall [Recovered/Resolved]
  - Upper respiratory tract infection [Recovered/Resolved]
  - Injection site pain [Recovered/Resolved]
  - Dysphonia [Recovered/Resolved]
  - Respiration abnormal [Recovered/Resolved]
  - Fall [Recovered/Resolved]
  - Lacrimation increased [Recovered/Resolved]

NARRATIVE: CASE EVENT DATE: 2018
